FAERS Safety Report 4740339-3 (Version None)
Quarter: 2005Q3

REPORT INFORMATION
  Report Type: 
  Country: None (occurrence: None)
  Receive Date: 20050801
  Receipt Date: 20050606
  Transmission Date: 20060218
  Serious: Yes (Death, Hospitalization)
  Sender: FDA-Public Use
  Company Number: 05P-163-0302566-00

PATIENT
  Sex: Female

DRUGS (1)
  1. SYNTHROID [Suspect]

REACTIONS (1)
  - CARDIAC ARREST [None]
